APPROVED DRUG PRODUCT: ATROPEN
Active Ingredient: ATROPINE
Strength: EQ 2MG SULFATE/0.7ML
Dosage Form/Route: SOLUTION;INTRAMUSCULAR
Application: N017106 | Product #001
Applicant: MERIDIAN MEDICAL TECHNOLOGIES LLC
Approved: Approved Prior to Jan 1, 1982 | RLD: Yes | RS: No | Type: DISCN